FAERS Safety Report 9696024 (Version 1)
Quarter: 2013Q4

REPORT INFORMATION
  Report Type: Report from Study
  Country: GB (occurrence: GB)
  Receive Date: 20131119
  Receipt Date: 20131119
  Transmission Date: 20140711
  Serious: Yes (Hospitalization)
  Sender: FDA-Public Use
  Company Number: GB-ROCHE-1306366

PATIENT
  Age: 81 Year
  Sex: Female

DRUGS (3)
  1. RANIBIZUMAB [Suspect]
     Indication: AGE-RELATED MACULAR DEGENERATION
     Route: 050
     Dates: start: 20090613
  2. RANIBIZUMAB [Suspect]
     Route: 050
     Dates: start: 20130711
  3. RANIBIZUMAB [Suspect]
     Route: 050
     Dates: start: 20131114

REACTIONS (1)
  - Cerebrovascular accident [Recovering/Resolving]
